FAERS Safety Report 22340987 (Version 1)
Quarter: 2023Q2

REPORT INFORMATION
  Report Type: Spontaneous
  Country: US (occurrence: None)
  Receive Date: 20230518
  Receipt Date: 20230518
  Transmission Date: 20230721
  Serious: Yes (Hospitalization)
  Sender: FDA-Public Use
  Company Number: None

PATIENT
  Age: 65 Year
  Sex: Male
  Weight: 58.97 kg

DRUGS (7)
  1. CAPECITABINE [Suspect]
     Active Substance: CAPECITABINE
     Indication: Oesophageal carcinoma
     Dosage: FREQUENCY : TWICE A DAY;?
     Route: 048
  2. BUTALBITAL-APAP-CAFFEINE [Concomitant]
  3. CODEINE SULFATE [Concomitant]
  4. GOMSEMG EXTRACT [Concomitant]
  5. MULTIVITAMIN [Concomitant]
  6. VALIUM [Concomitant]
     Active Substance: DIAZEPAM
  7. VITAMIN D [Concomitant]

REACTIONS (1)
  - Hospitalisation [None]
